FAERS Safety Report 9414440 (Version 2)
Quarter: 2013Q4

REPORT INFORMATION
  Report Type: Spontaneous
  Country: AU (occurrence: None)
  Receive Date: 20130717
  Receipt Date: 20131007
  Transmission Date: 20140711
  Serious: Yes (Hospitalization)
  Sender: FDA-Public Use
  Company Number: 2013000163

PATIENT
  Age: 58 Year
  Sex: Male

DRUGS (4)
  1. ACEON (PERINDOPRIL ERBUMINE) TABLET, 8MG [Suspect]
     Indication: HYPERTENSION
     Route: 048
     Dates: start: 20120705, end: 20120706
  2. ATORVASTATIN (ATORVASTATIN) [Concomitant]
  3. ACETYLSALICYLIC ACID [Concomitant]
  4. CLOPIDOGREL BISULFATE (CLOPIDOGREL BISULFATE) [Concomitant]

REACTIONS (6)
  - Dyspnoea [None]
  - Malaise [None]
  - Feeling of body temperature change [None]
  - Urticaria [None]
  - Dermatitis allergic [None]
  - Panic attack [None]
